FAERS Safety Report 17109472 (Version 1)
Quarter: 2019Q4

REPORT INFORMATION
  Report Type: Spontaneous
  Country: DE (occurrence: DE)
  Receive Date: 20191204
  Receipt Date: 20191204
  Transmission Date: 20200122
  Serious: Yes (Congenital Anomaly)
  Sender: FDA-Public Use
  Company Number: DE-TEVA-2019-DE-1145700

PATIENT
  Age: 1 Day
  Sex: Male
  Weight: 3.52 kg

DRUGS (3)
  1. PAROXETINE. [Suspect]
     Active Substance: PAROXETINE
     Indication: POST-TRAUMATIC STRESS DISORDER
     Dosage: 30 [MG/D (BIS 20) (1-0-0) ]/ INITIAL DOSE 30 MG/D, DOSE REDUCTION TO 20 MG/D AT GW 8
     Route: 064
     Dates: start: 20180922, end: 20190616
  2. LACHGAS [Concomitant]
     Indication: LABOUR PAIN
     Route: 064
     Dates: start: 20190616, end: 20190616
  3. FLUANXOL [Concomitant]
     Active Substance: FLUPENTIXOL
     Indication: POST-TRAUMATIC STRESS DISORDER
     Dosage: 0.5 [MG/D ]
     Route: 064
     Dates: start: 20180922, end: 20181103

REACTIONS (4)
  - Pulmonary artery stenosis [Unknown]
  - Congenital naevus [Not Recovered/Not Resolved]
  - Foetal exposure during pregnancy [Unknown]
  - Atrial septal defect [Unknown]

NARRATIVE: CASE EVENT DATE: 20190616
